FAERS Safety Report 10470772 (Version 2)
Quarter: 2014Q4

REPORT INFORMATION
  Report Type: Spontaneous
  Country: UY (occurrence: UY)
  Receive Date: 20140923
  Receipt Date: 20141009
  Transmission Date: 20150528
  Serious: Yes (Hospitalization)
  Sender: FDA-Public Use
  Company Number: UY-GLAXOSMITHKLINE-A1090477A

PATIENT
  Age: 54 Year
  Sex: Male

DRUGS (2)
  1. SUNITINIB [Suspect]
     Active Substance: SUNITINIB
     Indication: RENAL CELL CARCINOMA
     Dosage: UNK
     Dates: start: 20131210, end: 201405
  2. VOTRIENT [Suspect]
     Active Substance: PAZOPANIB HYDROCHLORIDE
     Indication: RENAL CANCER METASTATIC
     Dosage: 800 MG, QD
     Route: 048

REACTIONS (5)
  - Anaemia [Unknown]
  - Hyperglycaemia [Recovered/Resolved]
  - Asthenia [Unknown]
  - Pyrexia [Unknown]
  - Adverse event [Unknown]
